FAERS Safety Report 16169383 (Version 3)
Quarter: 2020Q4

REPORT INFORMATION
  Report Type: Report from Study
  Country: None (occurrence: JP)
  Receive Date: 20190408
  Receipt Date: 20201006
  Transmission Date: 20210113
  Serious: Yes (Other)
  Sender: FDA-Public Use
  Company Number: JP-CLINIGEN GROUP PLC/ CLINIGEN HEALTHCARE LTD-JP-CLGN-18-00066

PATIENT
  Age: 4 Year
  Sex: Male
  Weight: 12.7 kg

DRUGS (23)
  1. SAVENE [Suspect]
     Active Substance: DEXRAZOXANE
     Indication: CARDIOTOXICITY
     Route: 041
     Dates: start: 20181130, end: 20181130
  2. SEISHOKU [Concomitant]
     Active Substance: SODIUM CHLORIDE
     Route: 041
     Dates: start: 20181130, end: 20181130
  3. PROEMEND [Concomitant]
     Active Substance: FOSAPREPITANT
     Route: 041
     Dates: start: 20181130, end: 20181130
  4. DECADRON [Concomitant]
     Active Substance: DEXAMETHASONE
     Dates: start: 20181130, end: 20181130
  5. ENDOXAN [Concomitant]
     Active Substance: CYCLOPHOSPHAMIDE
     Indication: PRODUCT USED FOR UNKNOWN INDICATION
     Dates: start: 20170927, end: 20170929
  6. ENDOXAN [Concomitant]
     Active Substance: CYCLOPHOSPHAMIDE
     Dates: start: 20181130, end: 20181130
  7. DOXORUBICIN HYDROCHLORIDE. [Concomitant]
     Active Substance: DOXORUBICIN HYDROCHLORIDE
     Indication: PRODUCT USED FOR UNKNOWN INDICATION
     Route: 042
     Dates: start: 20170927, end: 20170928
  8. UROMITEXAN [Concomitant]
     Active Substance: MESNA
     Indication: CYSTITIS HAEMORRHAGIC
     Route: 042
     Dates: start: 20170927, end: 20170929
  9. DECADRON [Concomitant]
     Active Substance: DEXAMETHASONE
     Dates: start: 20181201, end: 20181204
  10. GRANISETRON [Concomitant]
     Active Substance: GRANISETRON
     Indication: VOMITING
     Route: 042
     Dates: start: 20170928, end: 20170930
  11. DECADRON [Concomitant]
     Active Substance: DEXAMETHASONE
     Indication: VOMITING
     Dates: start: 20170927, end: 20170929
  12. DOXORUBICIN HYDROCHLORIDE. [Concomitant]
     Active Substance: DOXORUBICIN HYDROCHLORIDE
     Dates: start: 20181130, end: 20181130
  13. UROMITEXAN [Concomitant]
     Active Substance: MESNA
     Dates: start: 20181130, end: 20181130
  14. ALOXI [Concomitant]
     Active Substance: PALONOSETRON HYDROCHLORIDE
     Route: 042
     Dates: start: 20181130, end: 20181130
  15. SAVENE [Suspect]
     Active Substance: DEXRAZOXANE
     Indication: PROPHYLAXIS
     Route: 041
     Dates: start: 20170927, end: 20170928
  16. SEISHOKU [Concomitant]
     Active Substance: SODIUM CHLORIDE
     Indication: MEDICATION DILUTION
     Route: 041
     Dates: start: 20170927, end: 20170928
  17. METHOTREXATE. [Concomitant]
     Active Substance: METHOTREXATE
     Indication: PRODUCT USED FOR UNKNOWN INDICATION
     Route: 024
     Dates: start: 20170927, end: 20170927
  18. GRANISETRON [Concomitant]
     Active Substance: GRANISETRON
     Route: 042
     Dates: start: 20181201, end: 20181201
  19. PROEMEND [Concomitant]
     Active Substance: FOSAPREPITANT
     Indication: VOMITING
     Route: 041
     Dates: start: 20170927, end: 20170927
  20. ONCOVIN [Concomitant]
     Active Substance: VINCRISTINE SULFATE
     Indication: PRODUCT USED FOR UNKNOWN INDICATION
     Route: 042
     Dates: start: 20170927, end: 20170927
  21. CYLOCIDE [Concomitant]
     Active Substance: CYTARABINE
     Indication: PRODUCT USED FOR UNKNOWN INDICATION
     Route: 024
     Dates: start: 20170927, end: 20170927
  22. LEUCOVORIN. [Concomitant]
     Active Substance: LEUCOVORIN
     Indication: PROPHYLAXIS
     Dates: start: 20170928, end: 20170928
  23. ALOXI [Concomitant]
     Active Substance: PALONOSETRON HYDROCHLORIDE
     Indication: VOMITING
     Route: 042
     Dates: start: 20170927, end: 20170927

REACTIONS (4)
  - Off label use [Unknown]
  - Alanine aminotransferase increased [Unknown]
  - Myelosuppression [Unknown]
  - Aspartate aminotransferase increased [Unknown]

NARRATIVE: CASE EVENT DATE: 20171011
